FAERS Safety Report 13610708 (Version 1)
Quarter: 2017Q2

REPORT INFORMATION
  Report Type: Spontaneous
  Country: US (occurrence: US)
  Receive Date: 20170605
  Receipt Date: 20170605
  Transmission Date: 20170830
  Serious: Yes (Death)
  Sender: FDA-Public Use
  Company Number: None

PATIENT
  Age: 63 Year
  Sex: Male
  Weight: 103.4 kg

DRUGS (2)
  1. VENOFER [Suspect]
     Active Substance: IRON SUCROSE
     Indication: END STAGE RENAL DISEASE
     Dosage: ROUTE - INTRAVENOUS PUSH?FREQUENCY - 3 X WEEK X 10 DOSES
     Route: 042
     Dates: start: 20170520, end: 20170523
  2. VENOFER [Suspect]
     Active Substance: IRON SUCROSE
     Indication: IRON DEFICIENCY
     Dosage: ROUTE - INTRAVENOUS PUSH?FREQUENCY - 3 X WEEK X 10 DOSES
     Route: 042
     Dates: start: 20170520, end: 20170523

REACTIONS (3)
  - Dyskinesia [None]
  - Respiratory arrest [None]
  - Dyspnoea [None]

NARRATIVE: CASE EVENT DATE: 20170523
